FAERS Safety Report 16398221 (Version 1)
Quarter: 2019Q2

REPORT INFORMATION
  Report Type: Spontaneous
  Country: IT (occurrence: IT)
  Receive Date: 20190606
  Receipt Date: 20190606
  Transmission Date: 20190711
  Serious: Yes (Life-Threatening)
  Sender: FDA-Public Use
  Company Number: IT-PFIZER INC-2019241919

PATIENT
  Age: 23 Year
  Sex: Female

DRUGS (2)
  1. LYRICA [Suspect]
     Active Substance: PREGABALIN
     Dosage: 6 DF, UNK (TOTAL)
     Route: 048
  2. BACLOFENE MYLAN [Suspect]
     Active Substance: BACLOFEN
     Dosage: 10 DF, UNK (TOTAL)
     Route: 048

REACTIONS (4)
  - Intentional self-injury [Unknown]
  - Drug abuse [Unknown]
  - Coma [Unknown]
  - Crying [Unknown]

NARRATIVE: CASE EVENT DATE: 20190428
